FAERS Safety Report 5755025-0 (Version None)
Quarter: 2008Q2

REPORT INFORMATION
  Report Type: 
  Country: None (occurrence: None)
  Receive Date: 20080528
  Receipt Date: 20080528
  Transmission Date: 20081010
  Serious: Yes (Hospitalization)
  Sender: FDA-Public Use
  Company Number: None

PATIENT
  Sex: Female
  Weight: 67 kg

DRUGS (4)
  1. CISPLATIN [Suspect]
     Dosage: 344 MG
  2. DOXORUBICIN HYDROCHLORIDE [Suspect]
     Dosage: 308 MG
  3. TAXOL [Suspect]
     Dosage: 1100 MG
  4. NEULASTA [Suspect]
     Dosage: 36 MG

REACTIONS (1)
  - FEBRILE NEUTROPENIA [None]
